FAERS Safety Report 8797884 (Version 1)
Quarter: 2012Q4

REPORT INFORMATION
  Report Type: 
  Country: US (occurrence: US)
  Receive Date: 20120919
  Receipt Date: 20120919
  Transmission Date: 20130627
  Serious: Yes (Other)
  Sender: FDA-Public Use
  Company Number: US-US-EMD SERONO, INC.-7160694

PATIENT
  Sex: Female

DRUGS (2)
  1. REBIF [Suspect]
     Indication: PRODUCT USED FOR UNKNOWN INDICATION
  2. REBIF [Suspect]
     Route: 058
     Dates: start: 20090707

REACTIONS (4)
  - Lyme disease [Unknown]
  - Nail discolouration [Unknown]
  - Nail bed disorder [Not Recovered/Not Resolved]
  - Pain in extremity [Recovered/Resolved]
